FAERS Safety Report 6661111-3 (Version None)
Quarter: 2010Q1

REPORT INFORMATION
  Report Type: 
  Country: None (occurrence: None)
  Receive Date: 20100331
  Receipt Date: 20100219
  Transmission Date: 20100710
  Serious: Yes (Other)
  Sender: FDA-Public Use
  Company Number: US-ROCHE-693618

PATIENT
  Age: 67 Year
  Sex: Female

DRUGS (4)
  1. TRASTUZUMAB [Suspect]
     Indication: DRUG USE FOR UNKNOWN INDICATION
     Dosage: REPORTED AS ROUTE:IV NOS
     Route: 042
     Dates: start: 20090917, end: 20091015
  2. DOCETAXEL [Suspect]
     Indication: BREAST CANCER
     Route: 042
     Dates: start: 20090917, end: 20091007
  3. REMERON [Concomitant]
     Dosage: REPORTED AS MITRAZAPINE
  4. ZOLPIDEM [Concomitant]
     Dosage: ZOLPIDEM TARTRATE

REACTIONS (1)
  - ALANINE AMINOTRANSFERASE INCREASED [None]
